FAERS Safety Report 5407847-3 (Version None)
Quarter: 2007Q3

REPORT INFORMATION
  Report Type: 
  Country: None (occurrence: None)
  Receive Date: 20070713
  Receipt Date: 20070501
  Transmission Date: 20080115
  Serious: No
  Sender: FDA-Public Use
  Company Number: 2007SP001601

PATIENT
  Age: 64 Year
  Sex: Female

DRUGS (2)
  1. LUNESTA [Suspect]
     Indication: INSOMNIA
     Dosage: 3 MG; HS; ORAL; 1.5 MG; 1X; ORAL
     Route: 048
     Dates: start: 20070101, end: 20070101
  2. LUNESTA [Suspect]
     Indication: INSOMNIA
     Dosage: 3 MG; HS; ORAL; 1.5 MG; 1X; ORAL
     Route: 048
     Dates: start: 20060101

REACTIONS (1)
  - DRUG EFFECT DECREASED [None]
